FAERS Safety Report 10808179 (Version 1)
Quarter: 2015Q1

REPORT INFORMATION
  Report Type: Report from Study
  Country: US (occurrence: US)
  Receive Date: 20150217
  Receipt Date: 20150217
  Transmission Date: 20150721
  Serious: No
  Sender: FDA-Public Use
  Company Number: US-ABBVIE-14K-163-1239968-00

PATIENT
  Age: 45 Year
  Sex: Male

DRUGS (2)
  1. UNKNOWN HIGH BLOOD PRESSURE MEDICATION [Concomitant]
     Indication: HYPERTENSION
  2. HUMIRA [Suspect]
     Active Substance: ADALIMUMAB
     Indication: PSORIASIS
     Dates: start: 20131213

REACTIONS (6)
  - Oral infection [Not Recovered/Not Resolved]
  - Headache [Not Recovered/Not Resolved]
  - Furuncle [Recovered/Resolved]
  - Furuncle [Not Recovered/Not Resolved]
  - Oedema mouth [Not Recovered/Not Resolved]
  - Oral infection [Recovered/Resolved]

NARRATIVE: CASE EVENT DATE: 201402
